FAERS Safety Report 21216496 (Version 1)
Quarter: 2022Q3

REPORT INFORMATION
  Report Type: Spontaneous
  Country: US (occurrence: US)
  Receive Date: 20220816
  Receipt Date: 20220816
  Transmission Date: 20221026
  Serious: Yes (Other)
  Sender: FDA-Public Use
  Company Number: US-MLMSERVICE-2022072836987861

PATIENT
  Age: 9 Decade
  Sex: Female

DRUGS (2)
  1. QUETIAPINE [Suspect]
     Active Substance: QUETIAPINE
     Indication: Hallucination, auditory
  2. SERTRALINE [Concomitant]
     Active Substance: SERTRALINE HYDROCHLORIDE
     Indication: Anxiety disorder

REACTIONS (3)
  - Drug intolerance [Unknown]
  - Hallucination [Recovering/Resolving]
  - Hallucination, auditory [Recovering/Resolving]
